FAERS Safety Report 19544008 (Version 2)
Quarter: 2022Q2

REPORT INFORMATION
  Report Type: Spontaneous
  Country: US (occurrence: US)
  Receive Date: 20210713
  Receipt Date: 20211215
  Transmission Date: 20220721
  Serious: No
  Sender: FDA-Public Use
  Company Number: US-FERRINGPH-2021FE02854

PATIENT
  Age: 72 Year
  Sex: Male
  Weight: 78.912 kg

DRUGS (2)
  1. ZOMACTON [Suspect]
     Active Substance: SOMATROPIN
     Indication: Malaise
     Dosage: UNSPECIFIED DOSE EVERY OTHER DAY
     Route: 065
     Dates: start: 2018
  2. ZOMACTON [Suspect]
     Active Substance: SOMATROPIN
     Indication: Asthenia

REACTIONS (11)
  - Weight increased [Unknown]
  - Palpitations [Unknown]
  - Drug ineffective for unapproved indication [Unknown]
  - Liquid product physical issue [Unknown]
  - Product storage error [Unknown]
  - Product use in unapproved indication [Unknown]
  - Off label use [Unknown]
  - Product administration interrupted [Unknown]
  - Inappropriate schedule of product administration [Unknown]
  - Poor quality product administered [Unknown]
  - Inability to afford medication [Unknown]

NARRATIVE: CASE EVENT DATE: 20180101
